FAERS Safety Report 19403919 (Version 1)
Quarter: 2021Q2

REPORT INFORMATION
  Report Type: Spontaneous
  Country: GB (occurrence: GB)
  Receive Date: 20210611
  Receipt Date: 20210611
  Transmission Date: 20210717
  Serious: Yes (Disabling)
  Sender: FDA-Public Use
  Company Number: None

PATIENT
  Age: 28 Year
  Sex: Male

DRUGS (1)
  1. ROGAINE [Suspect]
     Active Substance: MINOXIDIL

REACTIONS (8)
  - Erectile dysfunction [None]
  - Skin disorder [None]
  - Anxiety [None]
  - Penile size reduced [None]
  - Fatigue [None]
  - Loss of libido [None]
  - Sperm concentration decreased [None]
  - Depression [None]

NARRATIVE: CASE EVENT DATE: 20210119
